FAERS Safety Report 26007622 (Version 2)
Quarter: 2025Q4

REPORT INFORMATION
  Report Type: Spontaneous
  Country: JP (occurrence: JP)
  Receive Date: 20251106
  Receipt Date: 20251122
  Transmission Date: 20260117
  Serious: Yes (Death, Other)
  Sender: UCB
  Company Number: JP-UCBJ-CD202514390UCBPHAPROD

PATIENT
  Age: 93 Year
  Weight: 33.7 kg

DRUGS (8)
  1. LEVETIRACETAM [Suspect]
     Active Substance: LEVETIRACETAM
     Indication: Product used for unknown indication
     Dosage: 500 MILLIGRAM, 2X/DAY (BID)
  2. LEVETIRACETAM [Suspect]
     Active Substance: LEVETIRACETAM
     Dosage: 500 MILLIGRAM, EV 8 WEEKS
  3. LEVETIRACETAM [Suspect]
     Active Substance: LEVETIRACETAM
     Dosage: 1000 MILLIGRAM, 2X/DAY (BID)
  4. ROCEPHIN [Concomitant]
     Active Substance: CEFTRIAXONE SODIUM
     Indication: Product used for unknown indication
     Dosage: 2 GRAM, ONCE DAILY (QD)
  5. HARTMANN-G3 [Concomitant]
     Indication: Product used for unknown indication
     Dosage: UNK
  6. ALINAMIN F [Concomitant]
     Active Substance: FURSULTIAMINE HYDROCHLORIDE
     Indication: Product used for unknown indication
     Dosage: UNK
  7. PHOSFLAN [Concomitant]
     Indication: Product used for unknown indication
     Dosage: UNK
  8. ASCORBIC ACID [Concomitant]
     Active Substance: ASCORBIC ACID
     Indication: Product used for unknown indication
     Dosage: UNK

REACTIONS (3)
  - Terminal state [Fatal]
  - Therapeutic response decreased [Unknown]
  - Off label use [Unknown]
